FAERS Safety Report 9290873 (Version 3)
Quarter: 2014Q4

REPORT INFORMATION
  Report Type: Report from Study
  Country: FR (occurrence: FR)
  Receive Date: 20130515
  Receipt Date: 20141121
  Transmission Date: 20150529
  Serious: Yes (Death, Life-Threatening, Other)
  Sender: FDA-Public Use
  Company Number: FR-BAYER-2013-056377

PATIENT
  Age: 81 Year
  Sex: Female

DRUGS (6)
  1. PULMICORT TURBUHALER [Concomitant]
     Active Substance: BUDESONIDE
     Indication: ASTHMA
     Dosage: 2 DF, BID FOR SEVERAL YEARS
     Route: 048
  2. ATACAND [Concomitant]
     Active Substance: CANDESARTAN CILEXETIL
     Indication: HYPERTENSION
     Dosage: 16 MG, QD FOR MORE THAN 20 YEARS
     Route: 048
  3. FIXICAL D3 [Concomitant]
     Indication: OSTEOPOROSIS
     Dosage: 1000 MG, QD FOR MORE THAN 10 YEARS
     Route: 048
  4. FORADIL [Concomitant]
     Active Substance: FORMOTEROL FUMARATE
     Dosage: FOR SEVERAL YEARS
  5. DILTIAZEM HYDROCHLORIDE EXTENDED RELEASE [Concomitant]
     Active Substance: DILTIAZEM HYDROCHLORIDE
     Indication: HYPERTENSION
     Dosage: 300 MG, QD FOR SEVERAL YEARS
     Route: 048
  6. REGORAFENIB [Suspect]
     Active Substance: REGORAFENIB
     Indication: COLORECTAL CANCER METASTATIC
     Dosage: 120 MG, QD
     Route: 048
     Dates: start: 20130416, end: 20130507

REACTIONS (6)
  - Hypertension [Recovered/Resolved]
  - Arrhythmia [None]
  - Palmar-plantar erythrodysaesthesia syndrome [Not Recovered/Not Resolved]
  - Stomatitis [Not Recovered/Not Resolved]
  - Dry skin [Not Recovered/Not Resolved]
  - Cerebrovascular accident [Fatal]

NARRATIVE: CASE EVENT DATE: 20130425
